FAERS Safety Report 10355449 (Version 1)
Quarter: 2014Q3

REPORT INFORMATION
  Report Type: Spontaneous
  Country: IT (occurrence: IT)
  Receive Date: 20140731
  Receipt Date: 20140731
  Transmission Date: 20150326
  Serious: Yes (Hospitalization)
  Sender: FDA-Public Use
  Company Number: IT-WATSON-2014-16468

PATIENT
  Age: 59 Year
  Sex: Male

DRUGS (7)
  1. LUVION                             /00252501/ [Suspect]
     Active Substance: CANRENONE
     Indication: HYPERTENSIVE HEART DISEASE
     Dosage: 1 DF, DAILY
     Route: 048
     Dates: start: 20130701, end: 20140712
  2. RANITIDINE [Concomitant]
     Active Substance: RANITIDINE\RANITIDINE HYDROCHLORIDE
     Indication: PRODUCT USED FOR UNKNOWN INDICATION
     Dosage: 150 MG, UNK
  3. COUMADIN [Concomitant]
     Active Substance: WARFARIN SODIUM
     Indication: PRODUCT USED FOR UNKNOWN INDICATION
     Dosage: 5 MG TABLETS
  4. LASIX [Suspect]
     Active Substance: FUROSEMIDE
     Indication: HYPERTENSIVE HEART DISEASE
     Dosage: 1 DF, DAILY
     Route: 048
     Dates: start: 20130701, end: 20140712
  5. BISOPROLOL HEMIFUMARATE [Concomitant]
     Active Substance: BISOPROLOL
     Indication: PRODUCT USED FOR UNKNOWN INDICATION
     Dosage: UNK, UNKNOWN
     Route: 065
  6. RAMIPRIL (UNKNOWN) [Suspect]
     Active Substance: RAMIPRIL
     Indication: HYPERTENSIVE HEART DISEASE
     Dosage: 5 MG, DAILY
     Route: 048
     Dates: start: 20130101, end: 20140712
  7. CORDARONE [Concomitant]
     Active Substance: AMIODARONE HYDROCHLORIDE
     Indication: PRODUCT USED FOR UNKNOWN INDICATION
     Dosage: 200 MG TABLETS

REACTIONS (2)
  - Renal failure acute [Recovered/Resolved]
  - Hyperkalaemia [Recovered/Resolved]

NARRATIVE: CASE EVENT DATE: 20140712
